FAERS Safety Report 18193011 (Version 1)
Quarter: 2020Q3

REPORT INFORMATION
  Report Type: Spontaneous
  Country: FR (occurrence: FR)
  Receive Date: 20200825
  Receipt Date: 20200825
  Transmission Date: 20201103
  Serious: Yes (Hospitalization)
  Sender: FDA-Public Use
  Company Number: NVSC2020FR230405

PATIENT
  Age: 65 Year
  Sex: Male
  Weight: 57 kg

DRUGS (8)
  1. MICROPAKINE [Suspect]
     Active Substance: VALPROATE SODIUM
     Indication: EPILEPSY
     Dosage: 500 MG, QD
     Route: 048
     Dates: start: 20150101
  2. SERESTA [Suspect]
     Active Substance: OXAZEPAM
     Indication: MENTAL DISORDER
     Dosage: 25 MG, QD (SI BESOIN)
     Route: 048
     Dates: start: 20110101
  3. PARACETAMOL [Suspect]
     Active Substance: ACETAMINOPHEN
     Indication: PAIN
     Dosage: 4000 MG, QD (SI BESOIN)
     Route: 048
     Dates: start: 20150101
  4. MOVICOL [Suspect]
     Active Substance: POLYETHYLENE GLYCOL 3350\POTASSIUM CHLORIDE\SODIUM BICARBONATE\SODIUM CHLORIDE
     Indication: CONSTIPATION
     Dosage: 2 DF, QD (SI BESOIN)
     Route: 048
     Dates: start: 20120101
  5. FUMAFER [Suspect]
     Active Substance: FERROUS FUMARATE
     Indication: ANAEMIA
     Dosage: 1 UNK, QD
     Route: 048
     Dates: start: 20200602
  6. HALDOL DECANOAS [Suspect]
     Active Substance: HALOPERIDOL DECANOATE
     Indication: SCHIZOPHRENIA
     Dosage: 150 MG, QMO
     Route: 030
     Dates: start: 20100101
  7. PRINCI B [CYANOCOBALAMIN\PYRIDOXINE HYDROCHLORIDE\THIAMINE MONONITRATE] [Suspect]
     Active Substance: CYANOCOBALAMIN\PYRIDOXINE HYDROCHLORIDE\THIAMINE
     Indication: ALCOHOL ABUSE
     Dosage: 3 DF, QD
     Route: 048
     Dates: start: 20200611
  8. MICROPAKINE [Suspect]
     Active Substance: VALPROATE SODIUM
     Dosage: 1000 MG, QD
     Route: 048
     Dates: start: 20150101

REACTIONS (1)
  - Hypoglycaemia [Not Recovered/Not Resolved]

NARRATIVE: CASE EVENT DATE: 20200713
